FAERS Safety Report 5463082-4 (Version None)
Quarter: 2007Q3

REPORT INFORMATION
  Report Type: 
  Country: None (occurrence: None)
  Receive Date: 20070918
  Receipt Date: 20070918
  Transmission Date: 20080115
  Serious: No
  Sender: FDA-Public Use
  Company Number: None

PATIENT
  Age: 71 Year
  Sex: Male

DRUGS (1)
  1. FLUNISOLIDE [Suspect]
     Indication: RHINITIS ALLERGIC
     Dosage: 2PUFF(2) BID NASAL
     Route: 045
     Dates: start: 20070330, end: 20070330

REACTIONS (1)
  - NASAL DISCOMFORT [None]
